FAERS Safety Report 10551081 (Version 1)
Quarter: 2014Q4

REPORT INFORMATION
  Report Type: Spontaneous
  Country: US (occurrence: None)
  Receive Date: 20141028
  Receipt Date: 20141028
  Transmission Date: 20150529
  Serious: Yes (Other)
  Sender: FDA-Public Use
  Company Number: None

PATIENT
  Age: 69 Year
  Sex: Female
  Weight: 117.94 kg

DRUGS (2)
  1. CEFTRIAXONE. [Suspect]
     Active Substance: CEFTRIAXONE
     Indication: ABSCESS DRAINAGE
     Dosage: 1GM ONE TIME INTO THE MUSCLE
     Route: 030
     Dates: start: 20141024, end: 20141024
  2. CEFTRIAXONE. [Suspect]
     Active Substance: CEFTRIAXONE
     Indication: POSTOPERATIVE CARE
     Dosage: 1GM ONE TIME INTO THE MUSCLE
     Route: 030
     Dates: start: 20141024, end: 20141024

REACTIONS (2)
  - Post procedural complication [None]
  - Seizure [None]

NARRATIVE: CASE EVENT DATE: 20141024
